FAERS Safety Report 6646301-8 (Version None)
Quarter: 2010Q1

REPORT INFORMATION
  Report Type: 
  Country: None (occurrence: None)
  Receive Date: 20100323
  Receipt Date: 20100312
  Transmission Date: 20100710
  Serious: Yes (Other)
  Sender: FDA-Public Use
  Company Number: US-ROCHE-691494

PATIENT
  Age: 66 Year
  Sex: Male
  Weight: 45.4 kg

DRUGS (3)
  1. KLONOPIN [Suspect]
     Indication: DRUG USE FOR UNKNOWN INDICATION
     Route: 065
  2. ZICAM [Suspect]
     Dosage: DRUG REPORTED AS ZICAM COLD REMEDY GEL SWABS, DOSE REPORTED AS ONE DOSE DAILY
     Route: 065
     Dates: start: 20090901
  3. LOVASTATIN [Concomitant]

REACTIONS (2)
  - ANOSMIA [None]
  - NASAL DISCOMFORT [None]
